FAERS Safety Report 6648473-8 (Version None)
Quarter: 2010Q1

REPORT INFORMATION
  Report Type: 
  Country: None (occurrence: None)
  Receive Date: 20100319
  Receipt Date: 20100304
  Transmission Date: 20100710
  Serious: Yes (Death, Other)
  Sender: FDA-Public Use
  Company Number: MC201000082

PATIENT

DRUGS (1)
  1. CLEVIPREX [Suspect]
     Indication: HYPERTENSION
     Dosage: 1-2 MG/KG, INTRAVENOUS
     Route: 042
     Dates: start: 20100201, end: 20100201

REACTIONS (1)
  - HYPOTENSION [None]
